FAERS Safety Report 5492148-8 (Version None)
Quarter: 2007Q4

REPORT INFORMATION
  Report Type: 
  Country: None (occurrence: None)
  Receive Date: 20071015
  Receipt Date: 20070628
  Transmission Date: 20080405
  Serious: No
  Sender: FDA-Public Use
  Company Number: 2007SP002400

PATIENT
  Age: 58 Year
  Sex: Female
  Weight: 97.5234 kg

DRUGS (7)
  1. LUNESTA [Suspect]
     Indication: INSOMNIA
     Dosage: 2 MG; 1X; ORAL
     Route: 048
     Dates: start: 20070621, end: 20070621
  2. OXYCONTIN [Concomitant]
  3. ULTRACET [Concomitant]
  4. ATORVASTATIN CALCIUM [Concomitant]
  5. NADOLOL [Concomitant]
  6. NORTRIPTYLTNE [Concomitant]
  7. FOLIC ACID [Concomitant]

REACTIONS (1)
  - DYSGEUSIA [None]
